FAERS Safety Report 8408020-7 (Version None)
Quarter: 2012Q2

REPORT INFORMATION
  Report Type: 
  Country: None (occurrence: None)
  Receive Date: 20120604
  Receipt Date: 20120601
  Transmission Date: 20120825
  Serious: Yes (Hospitalization, Disabling)
  Sender: FDA-Public Use
  Company Number: US-MERCK-1203USA03352

PATIENT
  Age: 61 Year
  Sex: Female
  Weight: 58 kg

DRUGS (5)
  1. FOSAMAX [Suspect]
     Route: 048
     Dates: start: 20080401, end: 20110501
  2. FOSAMAX [Suspect]
     Indication: OSTEOPOROSIS
     Route: 048
     Dates: start: 20020718, end: 20080101
  3. PATANASE [Concomitant]
     Indication: SEASONAL ALLERGY
     Route: 065
  4. CALCIUM (UNSPECIFIED) AND VITAMIN D (UNSPECIFIED) [Concomitant]
     Indication: OSTEOPOROSIS
     Dosage: 600-200 MG
     Route: 048
  5. BLACK COHOSH [Concomitant]
     Indication: POSTMENOPAUSE
     Route: 065

REACTIONS (48)
  - IRON DEFICIENCY ANAEMIA [None]
  - STRESS FRACTURE [None]
  - ANXIETY [None]
  - PHOTOPSIA [None]
  - HAEMORRHOIDS [None]
  - HYPERTENSION [None]
  - GASTRITIS EROSIVE [None]
  - MITRAL VALVE DISEASE [None]
  - HYPERCHOLESTEROLAEMIA [None]
  - URINARY TRACT INFECTION [None]
  - TONSILLAR DISORDER [None]
  - UTERINE LEIOMYOMA [None]
  - FEMUR FRACTURE [None]
  - C-REACTIVE PROTEIN INCREASED [None]
  - TRIGGER FINGER [None]
  - SPINAL COMPRESSION FRACTURE [None]
  - DIVERTICULUM [None]
  - KYPHOSIS [None]
  - INTERSTITIAL LUNG DISEASE [None]
  - SCOLIOSIS [None]
  - VITREOUS FLOATERS [None]
  - INTERVERTEBRAL DISC DEGENERATION [None]
  - OCCULT BLOOD POSITIVE [None]
  - APPENDICITIS [None]
  - URINARY RETENTION POSTOPERATIVE [None]
  - HYPERTENSIVE HEART DISEASE [None]
  - UPPER RESPIRATORY TRACT INFECTION [None]
  - LIMB INJURY [None]
  - LUMBAR VERTEBRAL FRACTURE [None]
  - FALL [None]
  - OSTEOPOROSIS [None]
  - LOW TURNOVER OSTEOPATHY [None]
  - WEIGHT DECREASED [None]
  - UPPER-AIRWAY COUGH SYNDROME [None]
  - REPETITIVE STRAIN INJURY [None]
  - OSTEOPENIA [None]
  - CARDIOVASCULAR DISORDER [None]
  - TENOSYNOVITIS STENOSANS [None]
  - BODY HEIGHT DECREASED [None]
  - CARDIAC MURMUR [None]
  - HYPERCALCAEMIA [None]
  - SKIN LESION [None]
  - ROAD TRAFFIC ACCIDENT [None]
  - LUNG NEOPLASM [None]
  - ADVERSE EVENT [None]
  - HEPATIC CYST [None]
  - SOFT TISSUE INJURY [None]
  - IRRITABLE BOWEL SYNDROME [None]
